FAERS Safety Report 4576322-0 (Version None)
Quarter: 2005Q1

REPORT INFORMATION
  Report Type: 
  Country: None (occurrence: None)
  Receive Date: 20050207
  Receipt Date: 20050126
  Transmission Date: 20050727
  Serious: Yes (Other)
  Sender: FDA-Public Use
  Company Number: 2005007875

PATIENT
  Age: 57 Year
  Sex: Male

DRUGS (1)
  1. XALATAN [Suspect]
     Indication: GLAUCOMA
     Dosage: ONE DROP DAILY
     Dates: start: 20040320

REACTIONS (3)
  - CONDITION AGGRAVATED [None]
  - GLAUCOMA [None]
  - MACULAR OEDEMA [None]
